FAERS Safety Report 13761743 (Version 1)
Quarter: 2017Q3

REPORT INFORMATION
  Report Type: Report from Study
  Country: US (occurrence: US)
  Receive Date: 20170718
  Receipt Date: 20170718
  Transmission Date: 20171127
  Serious: No
  Sender: FDA-Public Use
  Company Number: PHEH2017US021680

PATIENT
  Sex: Female

DRUGS (1)
  1. AFINITOR [Suspect]
     Active Substance: EVEROLIMUS
     Indication: PRODUCT USED FOR UNKNOWN INDICATION
     Route: 065

REACTIONS (6)
  - Swollen tongue [Unknown]
  - Stomatitis [Unknown]
  - Oral pain [Unknown]
  - Oropharyngeal pain [Unknown]
  - Glossodynia [Unknown]
  - Dysphagia [Unknown]
